FAERS Safety Report 4763226-3 (Version None)
Quarter: 2005Q3

REPORT INFORMATION
  Report Type: 
  Country: None (occurrence: None)
  Receive Date: 20050902
  Receipt Date: 20050820
  Transmission Date: 20060218
  Serious: Yes (Hospitalization)
  Sender: FDA-Public Use
  Company Number: 2005PL000064

PATIENT
  Age: 55 Year
  Sex: Male

DRUGS (3)
  1. IMURAN [Suspect]
     Indication: SYSTEMIC LUPUS ERYTHEMATOSUS
     Dosage: PO
     Route: 048
  2. METHOTREXATE [Concomitant]
  3. PREDNISONE [Concomitant]

REACTIONS (4)
  - DYSPHAGIA [None]
  - HODGKIN'S DISEASE [None]
  - PHARYNGEAL STENOSIS [None]
  - PHARYNGOLARYNGEAL PAIN [None]
